FAERS Safety Report 9156303 (Version 4)
Quarter: 2013Q3

REPORT INFORMATION
  Report Type: Spontaneous
  Country: PL (occurrence: PL)
  Receive Date: 20130312
  Receipt Date: 20130909
  Transmission Date: 20140515
  Serious: Yes (Other)
  Sender: FDA-Public Use
  Company Number: PL-AMGEN-POLSP2013016697

PATIENT
  Age: 54 Year
  Sex: Female
  Weight: 60 kg

DRUGS (2)
  1. ENBREL [Suspect]
     Indication: PSORIATIC ARTHROPATHY
     Dosage: 50 MG, 1 X WEEK
     Route: 058
     Dates: start: 20091123, end: 20130221
  2. TREXAN                             /00723402/ [Concomitant]
     Indication: PSORIATIC ARTHROPATHY
     Dosage: 10 MG, QWK
     Dates: start: 20120718, end: 201208

REACTIONS (2)
  - Rash papular [Unknown]
  - Psoriasis [Unknown]
